FAERS Safety Report 8555137-2 (Version None)
Quarter: 2012Q3

REPORT INFORMATION
  Report Type: 
  Country: None (occurrence: None)
  Receive Date: 20120731
  Receipt Date: 20120724
  Transmission Date: 20120928
  Serious: Yes (Hospitalization)
  Sender: FDA-Public Use
  Company Number: BR-PFIZER INC-2012180006

PATIENT
  Age: 69 Year
  Sex: Female

DRUGS (2)
  1. COMBIGAN [Concomitant]
     Indication: GLAUCOMA
     Dosage: 1 GTT, 2X/DAY
     Dates: start: 20030101
  2. XALATAN [Suspect]
     Indication: GLAUCOMA
     Dosage: 3 UG, 1X/DAY (ONE DROP EACH EYE, ONCE A DAY)
     Route: 047
     Dates: start: 20040427

REACTIONS (2)
  - EYE DISORDER [None]
  - EYE IRRITATION [None]
